FAERS Safety Report 4995744-7 (Version None)
Quarter: 2006Q1

REPORT INFORMATION
  Report Type: 
  Country: None (occurrence: None)
  Receive Date: 20060315
  Receipt Date: 20051205
  Transmission Date: 20060701
  Serious: Yes (Other)
  Sender: FDA-Public Use
  Company Number: 427490

PATIENT
  Sex: Female

DRUGS (3)
  1. BONIVA [Suspect]
     Indication: OSTEOPOROSIS
     Dosage: 150 MG 1 PER MONTH ORAL
     Route: 048
     Dates: start: 20051015, end: 20051015
  2. LANOXIN [Concomitant]
  3. DILTIAZEM HCL (DILTIAZEM) [Concomitant]

REACTIONS (1)
  - HEART RATE INCREASED [None]
